FAERS Safety Report 4481520-0 (Version None)
Quarter: 2004Q3

REPORT INFORMATION
  Report Type: 
  Country: None (occurrence: None)
  Receive Date: 20040923
  Receipt Date: 20040610
  Transmission Date: 20050211
  Serious: No
  Sender: FDA-Public Use
  Company Number: USA040669854

PATIENT
  Age: 79 Year
  Sex: Male

DRUGS (3)
  1. FORTEO [Suspect]
     Dates: start: 20030101
  2. DEPO-TESTOSTERONE [Concomitant]
  3. ANDROGEL [Concomitant]

REACTIONS (1)
  - INJECTION SITE PAIN [None]
